FAERS Safety Report 7585590-2 (Version None)
Quarter: 2011Q2

REPORT INFORMATION
  Report Type: 
  Country: None (occurrence: None)
  Receive Date: 20110628
  Receipt Date: 20110628
  Transmission Date: 20111010
  Serious: Yes (Death, Life-Threatening, Hospitalization)
  Sender: FDA-Public Use
  Company Number: None

PATIENT
  Sex: Female
  Weight: 54.6 kg

DRUGS (2)
  1. MAGNEVIST [Suspect]
     Indication: SCAN WITH CONTRAST
     Dosage: 10ML EVERY 4 DAYS X 2 IV BOLUS
     Route: 040
     Dates: start: 20110304, end: 20110308
  2. ISOVUE-300 [Suspect]
     Indication: SCAN WITH CONTRAST
     Dosage: 100ML 3/4/11 + 75ML 3/5/11 ON 3/4/11- + 3/5/11 IV BOLUS
     Route: 040
     Dates: start: 20110304, end: 20110305

REACTIONS (11)
  - VOMITING [None]
  - POST PROCEDURAL COMPLICATION [None]
  - DEHYDRATION [None]
  - NEPHROPATHY [None]
  - DIALYSIS [None]
  - NAUSEA [None]
  - RENAL FAILURE ACUTE [None]
  - ASTHENIA [None]
  - ATRIAL FIBRILLATION [None]
  - REFUSAL OF TREATMENT BY PATIENT [None]
  - CONTRAST MEDIA REACTION [None]
